FAERS Safety Report 7310284-8 (Version None)
Quarter: 2011Q1

REPORT INFORMATION
  Report Type: 
  Country: None (occurrence: None)
  Receive Date: 20110224
  Receipt Date: 20110215
  Transmission Date: 20110831
  Serious: Yes (Hospitalization)
  Sender: FDA-Public Use
  Company Number: US-US-EMD SERONO, INC.-231395J10USA

PATIENT
  Sex: Female

DRUGS (2)
  1. REBIF [Suspect]
     Indication: MULTIPLE SCLEROSIS
     Route: 058
     Dates: start: 20100209, end: 20100101
  2. REBIF [Suspect]
     Route: 058
     Dates: start: 20100101, end: 20101230

REACTIONS (2)
  - CYSTITIS [None]
  - PNEUMONIA [None]
